FAERS Safety Report 15123620 (Version 1)
Quarter: 2018Q3

REPORT INFORMATION
  Report Type: Spontaneous
  Country: FR (occurrence: FR)
  Receive Date: 20180710
  Receipt Date: 20180710
  Transmission Date: 20181010
  Serious: Yes (Hospitalization, Disabling)
  Sender: FDA-Public Use
  Company Number: FR-ROCHE-2150939

PATIENT
  Age: 21 Year
  Sex: Male

DRUGS (6)
  1. VINCRISTINE HOSPIRA [Suspect]
     Active Substance: VINCRISTINE
     Indication: B-CELL LYMPHOMA
     Dosage: 1.4 MG/M2 PAR CURE, 9 CURES : 12.6 MG/M2?LAST DOSE ON 23/JUL/2015
     Route: 042
     Dates: start: 20150310
  2. PREDNISONE. [Suspect]
     Active Substance: PREDNISONE
     Indication: B-CELL LYMPHOMA
     Dosage: 40 MG/M2 PAR CURE, 9 CURES : 360 MG/M2?LAST DOSE ON 23/JUL/2015
     Route: 042
     Dates: start: 20150310
  3. MABTHERA [Suspect]
     Active Substance: RITUXIMAB
     Indication: B-CELL LYMPHOMA
     Dosage: 375 MG/M2 PAR CURE, 8 CURES : 300 MG/M2?LAST DOSE ON 23/JUL/2015
     Route: 042
     Dates: start: 20150314
  4. METHOTREXATE. [Suspect]
     Active Substance: METHOTREXATE
     Indication: B-CELL LYMPHOMA
     Dosage: 4 INJECTIONS DE 15 MG : 60 MG?LAST DOSE ON 13/MAY/2015
     Route: 037
     Dates: start: 20150401
  5. ENDOXAN [Suspect]
     Active Substance: CYCLOPHOSPHAMIDE
     Indication: B-CELL LYMPHOMA
     Dosage: 750 MG/M2 PAR CURE, 9 CURES : 6750 MG/M2?LAST DOSE ON 23/JUL/2015
     Route: 042
     Dates: start: 20150310
  6. ADRIBLASTINE [Suspect]
     Active Substance: DOXORUBICIN
     Indication: B-CELL LYMPHOMA
     Dosage: 50MG/M2 PAR CURE, 8 CURES : 400 MG/M2?LAST DOSE ON 23/JUL/2015
     Route: 042
     Dates: start: 20150314

REACTIONS (1)
  - Left ventricular dysfunction [Not Recovered/Not Resolved]

NARRATIVE: CASE EVENT DATE: 20170112
